FAERS Safety Report 5325715-2 (Version None)
Quarter: 2007Q2

REPORT INFORMATION
  Report Type: 
  Country: None (occurrence: None)
  Receive Date: 20070515
  Receipt Date: 20070510
  Transmission Date: 20071010
  Serious: Yes (Congenital Anomaly)
  Sender: FDA-Public Use
  Company Number: US-ALLERGAN-0704976US

PATIENT
  Sex: Female

DRUGS (1)
  1. TAZORAC[R] CREAM 0.05% [Suspect]
     Indication: ACNE
     Dosage: UNK, UNKNOWN
     Route: 061

REACTIONS (2)
  - CLEFT PALATE [None]
  - PREGNANCY [None]
